FAERS Safety Report 18257862 (Version 2)
Quarter: 2020Q4

REPORT INFORMATION
  Report Type: Report from Study
  Country: DE (occurrence: DE)
  Receive Date: 20200911
  Receipt Date: 20201029
  Transmission Date: 20210113
  Serious: Yes (Life-Threatening, Hospitalization, Disabling)
  Sender: FDA-Public Use
  Company Number: DE-PFIZER INC-2014277060

PATIENT
  Age: 14 Year
  Sex: Male
  Weight: 132 kg

DRUGS (4)
  1. METHOTREXATE SODIUM. [Suspect]
     Active Substance: METHOTREXATE SODIUM
     Dosage: 20 MG, WEEKLY
     Dates: start: 20030701, end: 20070705
  2. NAPROXEN. [Concomitant]
     Active Substance: NAPROXEN
     Indication: JUVENILE IDIOPATHIC ARTHRITIS
     Dosage: UNK
     Route: 048
     Dates: start: 20030401, end: 20050601
  3. DICLOFENAC [Concomitant]
     Active Substance: DICLOFENAC
     Indication: JUVENILE IDIOPATHIC ARTHRITIS
     Dosage: UNK
     Route: 048
     Dates: start: 20050601
  4. ENBREL [Suspect]
     Active Substance: ETANERCEPT
     Indication: POLYARTHRITIS
     Dosage: 32 MG, WEEKLY
     Dates: start: 20051104, end: 20110101

REACTIONS (1)
  - Ependymoma malignant [Recovered/Resolved]

NARRATIVE: CASE EVENT DATE: 20120307
